FAERS Safety Report 24651654 (Version 1)
Quarter: 2024Q4

REPORT INFORMATION
  Report Type: Spontaneous
  Country: NL (occurrence: NL)
  Receive Date: 20241122
  Receipt Date: 20241122
  Transmission Date: 20250115
  Serious: Yes (Other)
  Sender: AUROBINDO
  Company Number: NL-LRB-01012379

PATIENT
  Age: 50 Year
  Sex: Female
  Weight: 71 kg

DRUGS (2)
  1. NITROFURANTOIN [Suspect]
     Active Substance: NITROFURANTOIN
     Indication: Urinary tract infection
     Dosage: 200 MILLIGRAM, FOUR TIMES/DAY [4X PER DAG 1 STUK]
     Route: 065
     Dates: start: 20240720
  2. ACETAMINOPHEN [Suspect]
     Active Substance: ACETAMINOPHEN
     Indication: Abdominal pain
     Dosage: UNK [5X PER DAG 2 STUKS]
     Route: 048
     Dates: start: 20240624, end: 20240814

REACTIONS (1)
  - Acute hepatic failure [Recovered/Resolved]
